FAERS Safety Report 23660063 (Version 2)
Quarter: 2024Q2

REPORT INFORMATION
  Report Type: Report from Study
  Country: CN (occurrence: CN)
  Receive Date: 20240321
  Receipt Date: 20240403
  Transmission Date: 20240716
  Serious: Yes (Other)
  Sender: FDA-Public Use
  Company Number: CN-ROCHE-3528198

PATIENT
  Sex: Female

DRUGS (1)
  1. GAVRETO [Suspect]
     Active Substance: PRALSETINIB
     Indication: Non-small cell lung cancer
     Route: 048

REACTIONS (7)
  - Renal impairment [Unknown]
  - Hepatic function abnormal [Unknown]
  - Hypertension [Unknown]
  - Rash [Unknown]
  - White blood cell count decreased [Unknown]
  - Musculoskeletal chest pain [Unknown]
  - Anaemia [Unknown]
